FAERS Safety Report 8058529-3 (Version None)
Quarter: 2012Q1

REPORT INFORMATION
  Report Type: 
  Country: None (occurrence: None)
  Receive Date: 20120120
  Receipt Date: 20120106
  Transmission Date: 20120608
  Serious: Yes (Other)
  Sender: FDA-Public Use
  Company Number: US-MYLANLABS-2012S1000609

PATIENT
  Age: 72 Year
  Sex: Male

DRUGS (2)
  1. MESALAMINE [Concomitant]
     Indication: COLITIS
     Dosage: 1200MG DAILY
     Route: 065
  2. MERCAPTOPURINE [Suspect]
     Indication: COLITIS
     Dosage: 100MG DAILY
     Route: 065

REACTIONS (1)
  - SQUAMOUS CELL CARCINOMA [None]
